FAERS Safety Report 7959133-5 (Version None)
Quarter: 2011Q4

REPORT INFORMATION
  Report Type: 
  Country: None (occurrence: None)
  Receive Date: 20111206
  Receipt Date: 20111123
  Transmission Date: 20120403
  Serious: Yes (Death, Hospitalization, Other)
  Sender: FDA-Public Use
  Company Number: US-ELI_LILLY_AND_COMPANY-US201111007478

PATIENT
  Sex: Male

DRUGS (4)
  1. METFORMIN HCL [Concomitant]
  2. ZYPREXA [Suspect]
     Indication: TREMOR
     Dosage: 10 MG, EACH EVENING
     Dates: end: 20111109
  3. JANUVIA [Concomitant]
  4. FUROSEMIDE [Concomitant]

REACTIONS (7)
  - SEPSIS [None]
  - OFF LABEL USE [None]
  - MUSCLE SPASMS [None]
  - PNEUMONIA [None]
  - RENAL FAILURE [None]
  - WHITE BLOOD CELL COUNT INCREASED [None]
  - MUSCULOSKELETAL CHEST PAIN [None]
